FAERS Safety Report 8457687-6 (Version None)
Quarter: 2012Q2

REPORT INFORMATION
  Report Type: 
  Country: None (occurrence: None)
  Receive Date: 20120618
  Receipt Date: 20120618
  Transmission Date: 20120825
  Serious: Yes (Hospitalization)
  Sender: FDA-Public Use
  Company Number: None

PATIENT
  Age: 14 Year
  Sex: Female
  Weight: 53 kg

DRUGS (2)
  1. LYSTEDA [Suspect]
     Indication: VON WILLEBRAND'S DISEASE
     Dosage: 650MG TWICE DAILY PO
     Route: 048
     Dates: start: 20120509, end: 20120609
  2. LYSTEDA [Suspect]
     Indication: MENSTRUAL DISORDER
     Dosage: 650MG TWICE DAILY PO
     Route: 048
     Dates: start: 20120509, end: 20120609

REACTIONS (4)
  - HAEMOPTYSIS [None]
  - HEAD INJURY [None]
  - RESPIRATORY DISTRESS [None]
  - GINGIVAL BLEEDING [None]
